FAERS Safety Report 13740644 (Version 1)
Quarter: 2017Q3

REPORT INFORMATION
  Report Type: Spontaneous
  Country: US (occurrence: US)
  Receive Date: 20170710
  Receipt Date: 20170710
  Transmission Date: 20171127
  Serious: No
  Sender: FDA-Public Use
  Company Number: None

PATIENT
  Age: 66 Year
  Sex: Female
  Weight: 81.9 kg

DRUGS (20)
  1. CALCIUM [Concomitant]
     Active Substance: CALCIUM
  2. TRAMADOL. [Concomitant]
     Active Substance: TRAMADOL
  3. PRANDIN [Concomitant]
     Active Substance: REPAGLINIDE
  4. VOLTAREN [Concomitant]
     Active Substance: DICLOFENAC SODIUM
  5. LISINOPRIL. [Concomitant]
     Active Substance: LISINOPRIL
  6. VITAMIN C [Concomitant]
     Active Substance: ASCORBIC ACID
  7. HYDRALAZINE [Concomitant]
     Active Substance: HYDRALAZINE HYDROCHLORIDE
  8. SPIROLACTONE [Concomitant]
     Active Substance: SPIRONOLACTONE
  9. VERAPAMIL [Concomitant]
     Active Substance: VERAPAMIL HYDROCHLORIDE
  10. PROBIOTIC [Concomitant]
     Active Substance: PROBIOTICS NOS
  11. MELATOMIN [Concomitant]
  12. LORAZEPAM 2 MG RX# C798629 #5 057 MYLAN 777(LORAZEPAM 2MG) [Suspect]
     Active Substance: LORAZEPAM
     Indication: INSOMNIA
     Dosage: ?          OTHER STRENGTH:MG;QUANTITY:30 TABLET(S);?
     Route: 048
  13. METFORMIN [Concomitant]
     Active Substance: METFORMIN HYDROCHLORIDE
  14. JANUVIA [Concomitant]
     Active Substance: SITAGLIPTIN PHOSPHATE
  15. MULTIVITAMIN [Concomitant]
     Active Substance: VITAMINS
  16. GUAIFENESIN. [Concomitant]
     Active Substance: GUAIFENESIN
  17. ARTIFICIAL TEARS [Concomitant]
     Active Substance: GLYCERIN\HYPROMELLOSES\POLYETHYLENE GLYCOL 400
  18. VENLAFAXINE ER [Concomitant]
     Active Substance: VENLAFAXINE HYDROCHLORIDE
  19. PRAVASTATIN. [Concomitant]
     Active Substance: PRAVASTATIN
  20. CLONAZEPAM. [Concomitant]
     Active Substance: CLONAZEPAM

REACTIONS (3)
  - Glycosylated haemoglobin increased [None]
  - Type 2 diabetes mellitus [None]
  - Drug ineffective [None]

NARRATIVE: CASE EVENT DATE: 20170623
